FAERS Safety Report 14259183 (Version 1)
Quarter: 2017Q4

REPORT INFORMATION
  Report Type: Spontaneous
  Country: US (occurrence: US)
  Receive Date: 20171207
  Receipt Date: 20171207
  Transmission Date: 20180321
  Serious: Yes (Hospitalization)
  Sender: FDA-Public Use
  Company Number: US-JNJFOC-20171137156

PATIENT
  Age: 65 Year
  Sex: Male
  Weight: 115.67 kg

DRUGS (4)
  1. VICTOZA [Suspect]
     Active Substance: LIRAGLUTIDE
     Indication: PRODUCT USED FOR UNKNOWN INDICATION
     Route: 065
  2. INVOKANA [Suspect]
     Active Substance: CANAGLIFLOZIN
     Indication: TYPE 2 DIABETES MELLITUS
     Route: 048
     Dates: start: 2016
  3. ACTOS [Concomitant]
     Active Substance: PIOGLITAZONE HYDROCHLORIDE
     Dosage: IN THE EVENING
     Route: 065
  4. LEVEMIR [Concomitant]
     Active Substance: INSULIN DETEMIR
     Dosage: IN THE EVENING
     Route: 065

REACTIONS (4)
  - Weight decreased [Unknown]
  - Nausea [Unknown]
  - Decreased appetite [Unknown]
  - Thrombosis [Recovered/Resolved]

NARRATIVE: CASE EVENT DATE: 201709
